FAERS Safety Report 8214396-6 (Version None)
Quarter: 2012Q1

REPORT INFORMATION
  Report Type: 
  Country: None (occurrence: None)
  Receive Date: 20120227
  Receipt Date: 20111213
  Transmission Date: 20120608
  Serious: No
  Sender: FDA-Public Use
  Company Number: 341371

PATIENT
  Age: 66 Year
  Sex: Female

DRUGS (3)
  1. VICTOZA [Suspect]
     Indication: OBESITY
     Dosage: SUBCUTANEOUS
  2. NOVOLOG [Concomitant]
  3. NOVOLIN N [Concomitant]

REACTIONS (1)
  - ABDOMINAL PAIN [None]
